FAERS Safety Report 13430624 (Version 3)
Quarter: 2017Q3

REPORT INFORMATION
  Report Type: Report from Study
  Country: JP (occurrence: JP)
  Receive Date: 20170412
  Receipt Date: 20170822
  Transmission Date: 20171127
  Serious: Yes (Hospitalization)
  Sender: FDA-Public Use
  Company Number: JP-VIFOR (INTERNATIONAL) INC.-VIT-2017-03830

PATIENT
  Age: 49 Year
  Sex: Male

DRUGS (26)
  1. FUROSEMIDE. [Concomitant]
     Active Substance: FUROSEMIDE
     Route: 048
  2. ADALAT-L10 [Concomitant]
     Route: 048
  3. ARTIST [Concomitant]
     Active Substance: CARVEDILOL
     Route: 048
  4. RIONA [Concomitant]
     Active Substance: FERRIC CITRATE ANHYDROUS
     Indication: HYPERPHOSPHATAEMIA
     Route: 048
     Dates: end: 20160627
  5. MOHRUS TAPE [Concomitant]
     Active Substance: KETOPROFEN
     Dates: start: 20161219, end: 20170109
  6. FUTHAN [Concomitant]
     Active Substance: NAFAMOSTAT MESYLATE
     Dates: start: 20170118
  7. HEPARIN [Concomitant]
     Active Substance: HEPARIN SODIUM
     Dates: end: 20161230
  8. VELPHORO [Suspect]
     Active Substance: FERRIC OXYHYDROXIDE
     Indication: HYPERPHOSPHATAEMIA
     Route: 048
     Dates: start: 20160627, end: 20170127
  9. RENAGEL [Concomitant]
     Active Substance: SEVELAMER HYDROCHLORIDE
     Indication: HYPERPHOSPHATAEMIA
     Route: 048
  10. CILNIDIPINE [Concomitant]
     Active Substance: CILNIDIPINE
     Route: 048
  11. NIFEDIPINE CR [Concomitant]
     Active Substance: NIFEDIPINE
     Route: 048
  12. VALSARTAN. [Concomitant]
     Active Substance: VALSARTAN
     Route: 048
  13. PROMAC D [Concomitant]
     Active Substance: POLAPREZINC
     Route: 048
  14. ENSURE [Concomitant]
     Active Substance: AMINO ACIDS\DEXTROSE\ELECTROLYTES NOS\SOYBEAN OIL\VITAMINS
     Route: 048
     Dates: start: 20161125, end: 20161201
  15. FUTHAN [Concomitant]
     Active Substance: NAFAMOSTAT MESYLATE
     Dates: start: 20170102, end: 20170102
  16. REMITCH [Concomitant]
     Active Substance: NALFURAFINE HYDROCHLORIDE
     Route: 048
  17. NESP [Concomitant]
     Active Substance: DARBEPOETIN ALFA
     Dates: start: 20160919
  18. CALCIUM CARBONATE. [Concomitant]
     Active Substance: CALCIUM CARBONATE
     Indication: HYPERPHOSPHATAEMIA
     Route: 048
  19. PROTECADIN [Concomitant]
     Active Substance: LAFUTIDINE
  20. ENSURE [Concomitant]
     Active Substance: AMINO ACIDS\DEXTROSE\ELECTROLYTES NOS\SOYBEAN OIL\VITAMINS
     Route: 048
     Dates: start: 20160527, end: 20160531
  21. FESIN [Concomitant]
     Active Substance: IRON SUCROSE
     Dates: end: 20160916
  22. POLARAMINE [Concomitant]
     Active Substance: DEXCHLORPHENIRAMINE MALEATE
     Route: 048
  23. ENSURE [Concomitant]
     Active Substance: AMINO ACIDS\DEXTROSE\ELECTROLYTES NOS\SOYBEAN OIL\VITAMINS
     Route: 048
     Dates: start: 20161125, end: 20161201
  24. SUMILUSTICK [Concomitant]
     Dates: start: 20160615
  25. NESP [Concomitant]
     Active Substance: DARBEPOETIN ALFA
     Dates: start: 20160810, end: 20160912
  26. NESP [Concomitant]
     Active Substance: DARBEPOETIN ALFA
     Dates: start: 20161206

REACTIONS (6)
  - Faeces discoloured [Recovered/Resolved]
  - Nasopharyngitis [Recovered/Resolved]
  - Puncture site pain [Recovering/Resolving]
  - Gastric ulcer [Unknown]
  - Erosive duodenitis [Unknown]
  - Duodenal ulcer haemorrhage [Recovered/Resolved]

NARRATIVE: CASE EVENT DATE: 20160701
